FAERS Safety Report 6442284-4 (Version None)
Quarter: 2009Q4

REPORT INFORMATION
  Report Type: 
  Country: None (occurrence: None)
  Receive Date: 20091116
  Receipt Date: 20091104
  Transmission Date: 20100525
  Serious: Yes (Death, Hospitalization)
  Sender: FDA-Public Use
  Company Number: US-WATSON-2009-09444

PATIENT
  Sex: Male

DRUGS (3)
  1. RAPAFLO [Suspect]
     Indication: URINARY RETENTION
     Dosage: 8 MG, DAILY
     Route: 048
     Dates: start: 20090511, end: 20091104
  2. PACERONE [Concomitant]
     Indication: DRUG USE FOR UNKNOWN INDICATION
     Dosage: UNK
     Route: 065
  3. CARVEDILOL [Concomitant]
     Indication: DRUG USE FOR UNKNOWN INDICATION
     Dosage: UNK
     Route: 065

REACTIONS (2)
  - CARDIAC DISORDER [None]
  - HYPOVENTILATION [None]
